FAERS Safety Report 10443860 (Version 3)
Quarter: 2014Q4

REPORT INFORMATION
  Report Type: Report from Study
  Country: DE (occurrence: DE)
  Receive Date: 20140910
  Receipt Date: 20141030
  Transmission Date: 20150528
  Serious: Yes (Hospitalization)
  Sender: FDA-Public Use
  Company Number: PHHO2014DE003778

PATIENT
  Age: 44 Year
  Sex: Female
  Weight: 66 kg

DRUGS (4)
  1. DEXAMETHASONE ^GALEN^ [Suspect]
     Active Substance: DEXAMETHASONE
     Dosage: UNK
     Dates: start: 20140312
  2. AFINITOR [Suspect]
     Active Substance: EVEROLIMUS
     Indication: METASTATIC RENAL CELL CARCINOMA
     Dosage: 10 MG, QD
     Route: 048
     Dates: start: 20140130
  3. DEXAMETHASONE ^GALEN^ [Suspect]
     Active Substance: DEXAMETHASONE
     Dosage: 4 MG, QD
     Dates: start: 20140304
  4. DEXAMETHASONE ^GALEN^ [Suspect]
     Active Substance: DEXAMETHASONE
     Indication: PROPHYLAXIS
     Dosage: 4 MG, TID
     Dates: start: 20140218

REACTIONS (1)
  - Seizure [Recovered/Resolved]

NARRATIVE: CASE EVENT DATE: 20140312
